FAERS Safety Report 6272440-X (Version None)
Quarter: 2009Q3

REPORT INFORMATION
  Report Type: 
  Country: None (occurrence: None)
  Receive Date: 20090713
  Receipt Date: 20090408
  Transmission Date: 20100115
  Serious: Yes (Hospitalization)
  Sender: FDA-Public Use
  Company Number: 626801

PATIENT
  Age: 70 Year
  Sex: Female

DRUGS (19)
  1. BONIVA [Suspect]
     Indication: OSTEOPOROSIS
     Dates: start: 20071201
  2. FOLIC ACID [Concomitant]
  3. METHOTREXATE [Concomitant]
  4. PERCOGESIC (PARACETAMOL/PHENYLTOLOXAMINE) [Concomitant]
  5. METOPROLOL SUCCINATE (METOPROLOL) [Concomitant]
  6. DIGOXIN [Concomitant]
  7. FEXOFENADINE HYDROCHLORIDE [Concomitant]
  8. ALLEGRA-D (FEXOFENADINE HYDROCHLORIDE/PSEUDOEPHEDRINE HYDROCHLORIDE) [Concomitant]
  9. L-THYROXINE (LEVOTHYROXINE) [Concomitant]
  10. LISINOPRIL [Concomitant]
  11. RANITIDINE [Concomitant]
  12. SIMVASTATIN [Concomitant]
  13. WARFARIN SODIUM [Concomitant]
  14. LUNESTA [Concomitant]
  15. VITAMIN E (ALPHA-TOCOPHEROL) [Concomitant]
  16. ASCORBIC ACID [Concomitant]
  17. COENZYME Q10 [Concomitant]
  18. CALCIUM [Concomitant]
  19. VITAMINE D (VITAMIN D NOS) [Concomitant]

REACTIONS (3)
  - CHEST PAIN [None]
  - DYSPEPSIA [None]
  - EXPIRED DRUG ADMINISTERED [None]
